FAERS Safety Report 24044751 (Version 2)
Quarter: 2024Q3

REPORT INFORMATION
  Report Type: Spontaneous
  Country: GB (occurrence: GB)
  Receive Date: 20240703
  Receipt Date: 20240710
  Transmission Date: 20241017
  Serious: Yes (Life-Threatening, Hospitalization, Other)
  Sender: AUROBINDO
  Company Number: GB-ROCHE-3433029

PATIENT
  Age: 63 Year
  Sex: Male
  Weight: 80.5 kg

DRUGS (22)
  1. LENALIDOMIDE [Suspect]
     Active Substance: LENALIDOMIDE
     Indication: Follicular lymphoma
     Dosage: 10 MILLIGRAM, ONCE A DAY ( DAYS 1 TO 21 FOR 12 CYCLES)
     Route: 048
     Dates: start: 20230315
  2. LENALIDOMIDE [Suspect]
     Active Substance: LENALIDOMIDE
     Dosage: MOST RECENT DOSE OF LENALIDOMIDE PRIOR TO SAE (FIRST EPISODE) WAS ON 30/MAY/2023; ;
     Route: 048
     Dates: start: 20230530
  3. LENALIDOMIDE [Suspect]
     Active Substance: LENALIDOMIDE
     Dosage: MOST RECENT DOSE OF LENALIDOMIDE PRIOR TO SAE (SECOND EPISODE) WAS ON 27/JUN/2023.; ;
     Route: 048
     Dates: start: 20230627
  4. LENALIDOMIDE [Suspect]
     Active Substance: LENALIDOMIDE
     Dosage: 5 MILLIGRAM, ONCE A DAY (DAYS 1 TO 21 FOR 12 CYCLES)
     Route: 048
     Dates: start: 20230712
  5. LENALIDOMIDE [Suspect]
     Active Substance: LENALIDOMIDE
     Dosage: 5 MILLIGRAM, ONCE A DAY
     Route: 048
     Dates: start: 20230614
  6. LENALIDOMIDE [Suspect]
     Active Substance: LENALIDOMIDE
     Dosage: MOST RECENT DOSE OF LENALIDOMIDE PRIOR TO SAE (FIRST EPISODE) WAS ON 30/MAY/2023;
     Route: 065
     Dates: end: 20230919
  7. LENALIDOMIDE [Suspect]
     Active Substance: LENALIDOMIDE
     Dosage: UNKMOST RECENT DOSE OF LENALIDOMIDE PRIOR TO SAE (SECOND EPISODE) WAS ON 27/JUN/2023,
     Route: 048
     Dates: start: 20230627, end: 20230919
  8. LENALIDOMIDE [Suspect]
     Active Substance: LENALIDOMIDE
     Dosage: MOST RECENT DOSE OF LENALIDOMIDE PRIOR TO SAE (FIRST EPISODE) WAS ON 30/MAY/2023
     Route: 048
     Dates: end: 20230919
  9. RITUXIMAB [Suspect]
     Active Substance: RITUXIMAB
     Indication: Follicular lymphoma
     Dosage: MOST RECENT DOSE OF RITUXIMAB PRIOR TO SAE (FIRST AND SECOND EPISODE) WAS ON 10/MAY/2023.; ;
     Route: 042
     Dates: start: 20230510
  10. RITUXIMAB [Suspect]
     Active Substance: RITUXIMAB
     Dosage: 800 MILLIGRAM(FOR 5 CYCLES)
     Route: 042
     Dates: start: 20230316
  11. RITUXIMAB [Suspect]
     Active Substance: RITUXIMAB
     Dosage: 800 MILLIGRAM (FOR 5 CYCLES)
     Route: 042
     Dates: start: 20230705
  12. RITUXIMAB [Suspect]
     Active Substance: RITUXIMAB
     Dosage: 800 MILLIGRAM (FOR 5 CYCLES)
     Route: 042
     Dates: start: 20230507
  13. RITUXIMAB [Suspect]
     Active Substance: RITUXIMAB
     Dosage: UNK (MOST RECENT DOSE OF RITUXIMAB PRIOR TO SAE (FIRST AND SECOND EPISODE) WAS ON 10/MAY/2023)
     Route: 065
  14. RITUXIMAB [Suspect]
     Active Substance: RITUXIMAB
     Dosage: MOST RECENT DOSE OF RITUXIMAB PRIOR TO SAE (FIRST AND SECOND EPISODE)
     Route: 042
     Dates: start: 20230510
  15. TAFASITAMAB [Suspect]
     Active Substance: TAFASITAMAB
     Indication: Follicular lymphoma
     Dosage: MOST RECENT DOSE OF INCMOR00208/PLACEBO PRIOR TO SAE (FIRST EPISODE) WAS ON 31/MAY/2023; ;
     Route: 042
  16. TAFASITAMAB [Suspect]
     Active Substance: TAFASITAMAB
     Dosage: FOR 12 CYCLES WEEKLY THE FIRST 3 CYCLES AND Q2W.ON 13/SEP/2023, LAST DOSE OF INCMOR00208/PLACEBO...
     Route: 042
     Dates: start: 20230315
  17. TAFASITAMAB [Suspect]
     Active Substance: TAFASITAMAB
     Dosage: UNK
     Route: 042
     Dates: start: 20230621
  18. TAFASITAMAB [Suspect]
     Active Substance: TAFASITAMAB
     Dosage: UNK
     Route: 042
     Dates: start: 20230719
  19. TAFASITAMAB [Suspect]
     Active Substance: TAFASITAMAB
     Dosage: FOR 12 CYCLES WEEKLY THE FIRST 3 CYCLES AND Q2W
     Route: 042
     Dates: start: 20230315, end: 20230913
  20. TAFASITAMAB [Suspect]
     Active Substance: TAFASITAMAB
     Dosage: MOST RECENT DOSE OF PLACEBO PRIOR TO SAE (FIRST EPISODE)
     Route: 042
     Dates: start: 20230531
  21. PEGFILGRASTIM [Concomitant]
     Active Substance: PEGFILGRASTIM
     Indication: Product used for unknown indication
     Dosage: UNK
     Route: 058
     Dates: start: 20230607
  22. PEGFILGRASTIM [Concomitant]
     Active Substance: PEGFILGRASTIM
     Dosage: UNK
     Route: 058
     Dates: start: 20230703

REACTIONS (3)
  - Pneumonia [Unknown]
  - Neutrophil count decreased [Recovered/Resolved]
  - Disease progression [Unknown]

NARRATIVE: CASE EVENT DATE: 20230605
